FAERS Safety Report 22658521 (Version 1)
Quarter: 2023Q2

REPORT INFORMATION
  Report Type: Spontaneous
  Country: US (occurrence: US)
  Receive Date: 20230630
  Receipt Date: 20230630
  Transmission Date: 20230721
  Serious: Yes (Hospitalization)
  Sender: FDA-Public Use
  Company Number: US-MYLANLABS-2023M1068369

PATIENT
  Age: 37 Year
  Sex: Male

DRUGS (5)
  1. PREDNISONE [Suspect]
     Active Substance: PREDNISONE
     Indication: Palpitations
     Dosage: 100 MILLIGRAM, QD ( RECEIVED ESCALATING DOSES OF PREDNISONE UP TO 100 MG DAILY)
     Route: 065
  2. PREDNISONE [Suspect]
     Active Substance: PREDNISONE
     Indication: Rash
  3. PREDNISONE [Suspect]
     Active Substance: PREDNISONE
     Indication: Nausea
  4. PREDNISONE [Suspect]
     Active Substance: PREDNISONE
     Indication: Diarrhoea
  5. PREDNISONE [Suspect]
     Active Substance: PREDNISONE
     Indication: Colitis

REACTIONS (1)
  - Drug ineffective [Unknown]
